FAERS Safety Report 9664218 (Version 2)
Quarter: 2013Q4

REPORT INFORMATION
  Report Type: Report from Study
  Country: ES (occurrence: ES)
  Receive Date: 20131101
  Receipt Date: 20131125
  Transmission Date: 20140711
  Serious: Yes (Other)
  Sender: FDA-Public Use
  Company Number: ES-ASTELLAS-2013EU009264

PATIENT
  Age: 57 Year
  Sex: Female

DRUGS (2)
  1. TACROLIMUS SYSTEMIC [Suspect]
     Indication: PROPHYLAXIS AGAINST GRAFT VERSUS HOST DISEASE
     Dosage: UNK
     Route: 065
  2. RAPAMYCIN [Suspect]
     Indication: PROPHYLAXIS AGAINST GRAFT VERSUS HOST DISEASE
     Dosage: UNK
     Route: 065

REACTIONS (4)
  - Off label use [Unknown]
  - Off label use [Unknown]
  - Graft versus host disease [Not Recovered/Not Resolved]
  - Glomerulonephritis membranous [Unknown]
